FAERS Safety Report 5209784-6 (Version None)
Quarter: 2006Q4

REPORT INFORMATION
  Report Type: 
  Country: None (occurrence: None)
  Receive Date: 20061107
  Receipt Date: 20060907
  Transmission Date: 20070319
  Serious: No
  Sender: FDA-Public Use
  Company Number: IPX00007

PATIENT
  Age: 12 Year
  Sex: Male
  Weight: 33 kg

DRUGS (2)
  1. IPLEX [Suspect]
     Indication: BLOOD GROWTH HORMONE DECREASED
     Dosage: 30 MG/DAY/SC
     Route: 058
     Dates: start: 20060805, end: 20060906
  2. LEVOTHYROXINE SODIUM [Concomitant]

REACTIONS (1)
  - INJECTION SITE REACTION [None]
